FAERS Safety Report 7124410-7 (Version None)
Quarter: 2010Q4

REPORT INFORMATION
  Report Type: 
  Country: None (occurrence: None)
  Receive Date: 20101126
  Receipt Date: 20101123
  Transmission Date: 20110411
  Serious: Yes (Hospitalization, Other)
  Sender: FDA-Public Use
  Company Number: BE-BRISTOL-MYERS SQUIBB COMPANY-15028251

PATIENT
  Age: 65 Year
  Sex: Male
  Weight: 66 kg

DRUGS (5)
  1. CETUXIMAB [Suspect]
     Indication: HEAD AND NECK CANCER
     Dosage: RECENT INF: 15MAR2010;RECENT INF-22MAR2010 SINCE 29MAR2010 ONLY 63MG
     Route: 042
     Dates: start: 20091118
  2. CISPLATIN [Suspect]
     Indication: HEAD AND NECK CANCER
     Dosage: RECENT INF: 15MAR2010;RECENT INF-22MAR2010
     Route: 042
     Dates: start: 20091118
  3. TAXOTERE [Suspect]
     Indication: HEAD AND NECK CANCER
     Dosage: RECENT INF: 20JAN2010
     Route: 042
     Dates: start: 20091118
  4. FLUOROURACIL [Suspect]
     Indication: HEAD AND NECK CANCER
     Dosage: RECENT INF: 20JAN2010
     Route: 042
     Dates: start: 20091118, end: 20100120
  5. RADIOTHERAPY [Suspect]
     Indication: HEAD AND NECK CANCER
     Dosage: 1 DF : 2 GY;RECENTLY ON 14MAR2010;
     Dates: start: 20100215, end: 20100314

REACTIONS (3)
  - DECREASED APPETITE [None]
  - DYSPHAGIA [None]
  - WEIGHT DECREASED [None]
